FAERS Safety Report 17430246 (Version 16)
Quarter: 2021Q4

REPORT INFORMATION
  Report Type: Spontaneous
  Country: US (occurrence: US)
  Receive Date: 20200218
  Receipt Date: 20211213
  Transmission Date: 20220303
  Serious: Yes (Hospitalization, Other)
  Sender: FDA-Public Use
  Company Number: US-PFIZER INC-2020069183

PATIENT
  Age: 68 Year
  Sex: Female
  Weight: 99.773 kg

DRUGS (4)
  1. IBRANCE [Suspect]
     Active Substance: PALBOCICLIB
     Indication: Breast cancer metastatic
     Dosage: 125 MG, CYCLIC (FOR 21 DAYS)
     Dates: start: 201903
  2. LETROZOLE [Concomitant]
     Active Substance: LETROZOLE
     Dosage: 2.5 (UNITS NOT PROVIDED), DAILY
     Dates: start: 201903
  3. XGEVA [Concomitant]
     Active Substance: DENOSUMAB
     Indication: Metastases to bone
     Dosage: UNK
  4. HUMIRA [Concomitant]
     Active Substance: ADALIMUMAB
     Dosage: UNK

REACTIONS (10)
  - Illness [Unknown]
  - Sinusitis [Unknown]
  - Rheumatoid arthritis [Unknown]
  - Blood pressure increased [Unknown]
  - Weight increased [Unknown]
  - Gait disturbance [Unknown]
  - Stress [Unknown]
  - Hernia [Unknown]
  - Illness [Unknown]
  - Body height decreased [Unknown]

NARRATIVE: CASE EVENT DATE: 20201127
